FAERS Safety Report 8217611-8 (Version None)
Quarter: 2012Q1

REPORT INFORMATION
  Report Type: 
  Country: None (occurrence: None)
  Receive Date: 20120319
  Receipt Date: 20120319
  Transmission Date: 20120608
  Serious: Yes (Life-Threatening, Disabling)
  Sender: FDA-Public Use
  Company Number: None

PATIENT
  Age: 65 Year
  Sex: Male
  Weight: 81.646 kg

DRUGS (1)
  1. CYMBALTA [Suspect]
     Indication: DEPRESSION
     Dosage: 60.0 MG
     Dates: start: 20120301, end: 20120317

REACTIONS (4)
  - MYALGIA [None]
  - CHEST DISCOMFORT [None]
  - RASH GENERALISED [None]
  - ECONOMIC PROBLEM [None]
